FAERS Safety Report 20339598 (Version 4)
Quarter: 2022Q1

REPORT INFORMATION
  Report Type: Spontaneous
  Country: US (occurrence: US)
  Receive Date: 20220117
  Receipt Date: 20220329
  Transmission Date: 20220423
  Serious: No
  Sender: FDA-Public Use
  Company Number: US-Blueprint Medicines Corporation-SP-US-2021-002689

PATIENT
  Age: 41 Year
  Sex: Female

DRUGS (3)
  1. AYVAKIT [Suspect]
     Active Substance: AVAPRITINIB
     Indication: Systemic mastocytosis
     Route: 048
     Dates: start: 20211219
  2. AYVAKIT [Suspect]
     Active Substance: AVAPRITINIB
     Route: 048
  3. AYVAKIT [Suspect]
     Active Substance: AVAPRITINIB
     Route: 048
     Dates: start: 20211219

REACTIONS (6)
  - Abdominal pain upper [Recovering/Resolving]
  - Nausea [Unknown]
  - Fatigue [Recovering/Resolving]
  - Alopecia [Recovering/Resolving]
  - Constipation [Recovering/Resolving]
  - Gastrointestinal disorder [Recovering/Resolving]
